FAERS Safety Report 6340206-8 (Version None)
Quarter: 2009Q3

REPORT INFORMATION
  Report Type: 
  Country: None (occurrence: None)
  Receive Date: 20090903
  Receipt Date: 20090828
  Transmission Date: 20100115
  Serious: Yes (Life-Threatening, Hospitalization, Other)
  Sender: FDA-Public Use
  Company Number: BE-AMGEN-UK356047

PATIENT
  Age: 48 Year
  Sex: Female
  Weight: 64.7 kg

DRUGS (10)
  1. ARANESP [Suspect]
     Indication: RENAL FAILURE CHRONIC
     Route: 042
     Dates: start: 20071114, end: 20090713
  2. TACROLIMUS [Concomitant]
     Route: 048
     Dates: start: 20070201
  3. FUROSEMIDE [Concomitant]
     Route: 048
     Dates: start: 20070924
  4. MEDROL [Concomitant]
     Route: 048
     Dates: start: 20070226
  5. CANDESARTAN CILEXETIL [Concomitant]
     Route: 048
     Dates: start: 20070707
  6. LYNESTRENOL [Concomitant]
     Route: 048
     Dates: start: 20090618
  7. AZATHIOPRINE [Concomitant]
     Route: 065
     Dates: start: 20090425, end: 20090616
  8. MOXONIDINE [Concomitant]
     Route: 065
     Dates: start: 20070707
  9. VENOFER [Concomitant]
     Route: 042
     Dates: start: 20080617, end: 20090713
  10. MYFORTIC [Concomitant]
     Route: 065
     Dates: start: 20070201, end: 20090424

REACTIONS (7)
  - ANAEMIA [None]
  - APLASIA PURE RED CELL [None]
  - ASTHENIA [None]
  - CLOSTRIDIUM DIFFICILE COLITIS [None]
  - DYSPNOEA [None]
  - PARVOVIRUS INFECTION [None]
  - RENAL FAILURE ACUTE [None]
